FAERS Safety Report 23679350 (Version 2)
Quarter: 2024Q2

REPORT INFORMATION
  Report Type: Spontaneous
  Country: US (occurrence: US)
  Receive Date: 20240327
  Receipt Date: 20240423
  Transmission Date: 20240716
  Serious: No
  Sender: FDA-Public Use
  Company Number: US-MYLANLABS-2024M1023901

PATIENT
  Age: 59 Year
  Sex: Female
  Weight: 81.64 kg

DRUGS (4)
  1. ESTRADIOL TRANSDERMAL SYSTEM [Suspect]
     Active Substance: ESTRADIOL
     Indication: Hormone replacement therapy
     Dosage: 0.025 MILLIGRAM, QD (ONCE WEEKLY)
     Route: 062
  2. ESTRADIOL TRANSDERMAL SYSTEM [Suspect]
     Active Substance: ESTRADIOL
     Dosage: 0.025 MILLIGRAM, QD (ONCE WEEKLY)
     Route: 062
     Dates: start: 20231217
  3. ESTRADIOL TRANSDERMAL SYSTEM [Suspect]
     Active Substance: ESTRADIOL
     Dosage: 0.025 MILLIGRAM, QD (ONCE WEEKLY)
     Route: 062
     Dates: start: 20231224
  4. ESTRADIOL TRANSDERMAL SYSTEM [Suspect]
     Active Substance: ESTRADIOL
     Dosage: 0.025 MILLIGRAM, QD (ONCE WEEKLY)
     Route: 062
     Dates: start: 20231231

REACTIONS (3)
  - Off label use [Unknown]
  - Product storage error [Unknown]
  - Product adhesion issue [Unknown]

NARRATIVE: CASE EVENT DATE: 20231217
